FAERS Safety Report 22593444 (Version 1)
Quarter: 2023Q2

REPORT INFORMATION
  Report Type: Spontaneous
  Country: IT (occurrence: IT)
  Receive Date: 20230613
  Receipt Date: 20230613
  Transmission Date: 20230722
  Serious: Yes (Other)
  Sender: FDA-Public Use
  Company Number: IT-SA-SAC20230612000017

PATIENT
  Age: 55 Year
  Sex: Male

DRUGS (3)
  1. SARCLISA [Suspect]
     Active Substance: ISATUXIMAB-IRFC
     Indication: Plasma cell myeloma
     Dosage: 4TH COURSE OF ADMINISTRATION
     Route: 041
  2. VTD [Concomitant]
     Dosage: UNK
  3. LENALIDOMIDE [Concomitant]
     Active Substance: LENALIDOMIDE
     Dosage: UNK

REACTIONS (4)
  - Myocardial infarction [Unknown]
  - Asthenia [Unknown]
  - Blood pressure diastolic increased [Unknown]
  - Dyspnoea [Unknown]

NARRATIVE: CASE EVENT DATE: 20230101
